FAERS Safety Report 5725734-8 (Version None)
Quarter: 2008Q2

REPORT INFORMATION
  Report Type: 
  Country: None (occurrence: None)
  Receive Date: 20080501
  Receipt Date: 20080424
  Transmission Date: 20081010
  Serious: Yes (Other)
  Sender: FDA-Public Use
  Company Number: US-MERCK-0804USA05299

PATIENT
  Age: 48 Year
  Sex: Male

DRUGS (5)
  1. ISENTRESS [Suspect]
     Indication: HIV INFECTION
     Route: 048
     Dates: start: 20080228, end: 20080416
  2. ZIDOVUDINE [Concomitant]
     Route: 065
  3. DIFLUCAN [Concomitant]
     Route: 065
  4. VIREAD [Concomitant]
     Route: 065
  5. ZIAGEN [Concomitant]
     Route: 065

REACTIONS (3)
  - BLISTER [None]
  - DIARRHOEA [None]
  - RASH PRURITIC [None]
